FAERS Safety Report 5973014-8 (Version None)
Quarter: 2008Q4

REPORT INFORMATION
  Report Type: 
  Country: None (occurrence: None)
  Receive Date: 20081201
  Receipt Date: 20081127
  Transmission Date: 20090506
  Serious: Yes (Death, Other)
  Sender: FDA-Public Use
  Company Number: PHHY2008JP22125

PATIENT
  Sex: Female
  Weight: 59 kg

DRUGS (24)
  1. TEGRETOL [Suspect]
     Indication: EPILEPSY
     Dosage: 200 MG, QD
     Route: 048
     Dates: start: 20080821, end: 20080826
  2. ALEVIATIN [Suspect]
     Indication: EPILEPSY
     Dosage: 250 MG DAILY
     Dates: start: 20080812, end: 20080812
  3. ALLOZYM [Suspect]
     Indication: HYPERURICAEMIA
     Dosage: 100MG DAILY
     Route: 048
     Dates: start: 20080818
  4. ALLOZYM [Suspect]
     Dosage: 200MG DAILY
     Dates: end: 20080905
  5. RIVOTRIL [Concomitant]
     Indication: EPILEPSY
     Dosage: 1MG
     Route: 048
     Dates: start: 20080906
  6. VALERIN [Concomitant]
     Indication: EPILEPSY
     Dosage: 400MG
     Route: 048
     Dates: start: 20080814, end: 20080821
  7. ALDACTONE [Concomitant]
     Indication: CARDIAC FAILURE CONGESTIVE
     Dosage: 50MG
     Route: 048
     Dates: end: 20080819
  8. NORVASC [Concomitant]
     Indication: HYPERTENSION
     Dosage: 5MG
     Route: 048
  9. FLUITRAN [Concomitant]
     Indication: CARDIAC FAILURE CONGESTIVE
     Dosage: 2MG
     Route: 048
     Dates: end: 20080819
  10. WARFARIN SODIUM [Concomitant]
     Indication: THROMBOSIS PROPHYLAXIS
     Dosage: 1.5 MG
     Route: 048
  11. SERENACE [Concomitant]
     Indication: SCHIZOPHRENIA
     Dosage: 1.5 MG
     Route: 048
     Dates: end: 20080905
  12. GRAMALIL [Concomitant]
     Indication: PSYCHOMOTOR HYPERACTIVITY
     Dosage: 25 MG
     Route: 048
     Dates: start: 20080814, end: 20080826
  13. KIPRES [Concomitant]
     Dosage: 1 DF
     Route: 048
  14. THEOLONG [Concomitant]
     Dosage: 2 DF
     Route: 048
  15. PREDNISOLONE [Concomitant]
     Dosage: 20MG
  16. ANTEBATE [Concomitant]
  17. CELESTAMINE                        /00252801/ [Concomitant]
  18. FLOMOX [Concomitant]
     Dosage: UNK
     Dates: start: 20080901
  19. ACETAMINOPHEN [Concomitant]
  20. CALONAL [Concomitant]
  21. LOCOID [Concomitant]
  22. DERMOSOL [Concomitant]
  23. SOLU-MEDROL [Concomitant]
     Dosage: 500MG
  24. SOLU-MEDROL [Concomitant]
     Dosage: 1000 MG
     Dates: start: 20080919

REACTIONS (14)
  - CONDITION AGGRAVATED [None]
  - DISSEMINATED INTRAVASCULAR COAGULATION [None]
  - DRUG RASH WITH EOSINOPHILIA AND SYSTEMIC SYMPTOMS [None]
  - ERYTHEMA [None]
  - HYPERTHERMIA [None]
  - INTERNATIONAL NORMALISED RATIO INCREASED [None]
  - PLATELET COUNT DECREASED [None]
  - PRURITUS [None]
  - PURPURA [None]
  - RASH [None]
  - SHOCK [None]
  - SKIN DISORDER [None]
  - TOXIC EPIDERMAL NECROLYSIS [None]
  - WHITE BLOOD CELL COUNT DECREASED [None]
